FAERS Safety Report 4435867-4 (Version None)
Quarter: 2004Q3

REPORT INFORMATION
  Report Type: 
  Country: None (occurrence: None)
  Receive Date: 20040726
  Receipt Date: 20040318
  Transmission Date: 20050211
  Serious: No
  Sender: FDA-Public Use
  Company Number: USA031153418

PATIENT
  Age: 59 Year
  Sex: Female

DRUGS (11)
  1. FORTEO [Suspect]
     Indication: OSTEOGENESIS IMPERFECTA
     Dosage: 20 UG DAY
     Dates: start: 20031121
  2. FORTEO [Suspect]
     Indication: OSTEOPOROSIS
     Dosage: 20 UG DAY
     Dates: start: 20031121
  3. LOPRESSOR [Concomitant]
  4. DIOVAN [Concomitant]
  5. XANAX [Concomitant]
  6. BENADRYL [Concomitant]
  7. MULTI-VITAMIN [Concomitant]
  8. CHONDROITIN SULFATE [Concomitant]
  9. CALCIUM [Concomitant]
  10. VITAMIN C [Concomitant]
  11. VITAMIN E [Concomitant]

REACTIONS (10)
  - APATHY [None]
  - DIFFICULTY IN WALKING [None]
  - DIZZINESS [None]
  - INJECTION SITE ERYTHEMA [None]
  - INJECTION SITE HAEMORRHAGE [None]
  - MUSCLE CRAMP [None]
  - MUSCLE TIGHTNESS [None]
  - MUSCULAR WEAKNESS [None]
  - MYALGIA [None]
  - PAIN [None]
